FAERS Safety Report 11565812 (Version 2)
Quarter: 2015Q4

REPORT INFORMATION
  Report Type: Report from Study
  Country: IN (occurrence: IN)
  Receive Date: 20150928
  Receipt Date: 20151211
  Transmission Date: 20160304
  Serious: Yes (Hospitalization)
  Sender: FDA-Public Use
  Company Number: IN-B.I. PHARMACEUTICALS,INC./RIDGEFIELD-2015-BI-52279BI

PATIENT
  Age: 69 Year
  Sex: Female
  Weight: 62 kg

DRUGS (24)
  1. DABIGATRAN [Suspect]
     Active Substance: DABIGATRAN
     Indication: ATRIAL FIBRILLATION
     Dosage: 220 MG
     Route: 048
     Dates: start: 20150901
  2. THYRONORM [Concomitant]
     Active Substance: LEVOTHYROXINE
     Indication: HYPOTHYROIDISM
     Dosage: 50 MCG
     Route: 048
     Dates: start: 20150822, end: 20150827
  3. CALCIUM [Concomitant]
     Active Substance: CALCIUM
     Indication: ANGINA PECTORIS
     Dosage: 10 MG
     Route: 048
     Dates: start: 20150901
  4. AZTOR [Concomitant]
     Indication: HYPERLIPIDAEMIA
     Dosage: 40 MG
     Route: 048
     Dates: start: 20150921
  5. TOR [Concomitant]
     Indication: DIURETIC THERAPY
     Dosage: 20 MG
     Route: 048
     Dates: start: 20150831, end: 20150921
  6. PANTOCID DSR [Concomitant]
     Dosage: 40 MG
     Route: 048
     Dates: start: 20150907
  7. THYRONORM [Concomitant]
     Active Substance: LEVOTHYROXINE
     Dosage: 100 MCG
     Route: 048
     Dates: start: 20150828
  8. RANOZEX [Concomitant]
     Indication: ANGINA PECTORIS
     Dosage: 100 MG
     Route: 048
     Dates: start: 20150828
  9. PANTOCID DSR [Concomitant]
     Dosage: DAILY DOSE: 40+20 MG
     Route: 048
     Dates: start: 20150907
  10. RABELOC [Concomitant]
     Dosage: 40 MG
     Route: 042
     Dates: start: 20150830, end: 20150830
  11. CARDIVAS [Concomitant]
     Indication: HYPERTENSION
     Dosage: 25 MG
     Route: 048
     Dates: start: 20150831
  12. EPTUS [Concomitant]
     Indication: DRUG THERAPY
     Dosage: 25 MG
     Route: 048
     Dates: start: 20150831
  13. RABELOC [Concomitant]
     Indication: GASTRITIS
     Dosage: FORMULATION: INJ; DAILY DOSE: 20MG SOS
     Route: 042
     Dates: start: 20150831, end: 20150831
  14. AZTOR [Concomitant]
     Indication: PROPHYLAXIS
     Dosage: 40 MG
     Route: 048
     Dates: start: 20150828, end: 20150921
  15. CREMAFIN [Concomitant]
     Indication: CONSTIPATION
     Dosage: FORMULATION LIQUID,DOSE PER APPLICATION AND DAILY DOSE 3TSF
     Route: 048
     Dates: start: 20150902, end: 20150922
  16. BECOSULES [Concomitant]
     Indication: VITAMIN SUPPLEMENTATION
     Dosage: DOSE PER APP/DAILY DOSE: 3 TSP.
     Route: 048
     Dates: start: 20150907
  17. IMDUR [Concomitant]
     Active Substance: ISOSORBIDE MONONITRATE
     Indication: ANGINA PECTORIS
     Dosage: 60 MG
     Route: 048
     Dates: start: 20150921
  18. RABELOC [Concomitant]
     Dosage: 20 MG
     Route: 042
     Dates: start: 20150921, end: 20150922
  19. CYTOGARD [Concomitant]
     Indication: ANGINA PECTORIS
     Dosage: 60 MG
     Route: 048
     Dates: start: 20150828, end: 20150907
  20. DILOSYN [Concomitant]
     Indication: HYPERSENSITIVITY
     Dosage: DAILY DOSE:3 TSF SOS
     Route: 048
     Dates: start: 20151116
  21. CREMAFIN [Concomitant]
     Dosage: FORMULATION LIQUID,DOSE PER APPLICATION AND DAILY DOSE 3TSF SOS
     Route: 048
     Dates: start: 20150902, end: 20150922
  22. TICAGRELOR [Suspect]
     Active Substance: TICAGRELOR
     Indication: ATRIAL FIBRILLATION
     Dosage: 180 MG
     Route: 048
     Dates: start: 20150901
  23. PANTOCID DSR [Concomitant]
     Indication: GASTRITIS
     Route: 048
     Dates: start: 20150831, end: 20150907
  24. LANOXIN [Concomitant]
     Active Substance: DIGOXIN
     Indication: CARDIAC FAILURE CONGESTIVE
     Dosage: 0.125 MG
     Route: 048
     Dates: start: 20150828, end: 20150921

REACTIONS (1)
  - Hypokalaemia [Recovered/Resolved]

NARRATIVE: CASE EVENT DATE: 20150921
